FAERS Safety Report 9908063 (Version 1)
Quarter: 2014Q1

REPORT INFORMATION
  Report Type: Spontaneous
  Country: US (occurrence: None)
  Receive Date: 20140211
  Receipt Date: 20140211
  Transmission Date: 20141002
  Serious: Yes (Hospitalization)
  Sender: FDA-Public Use
  Company Number: IPC201402-000073

PATIENT
  Age: 61 Year
  Sex: Female

DRUGS (7)
  1. ALLOPURINOL (ALLOPURINOL) (ALLOPURINOL) [Suspect]
     Indication: GOUT
     Route: 048
  2. LISINOPRIL (LISINOPRIL) (LISINOPRIL) [Concomitant]
  3. AMLODIPINE (AMLODIPINE) (AMLODIPINE) [Concomitant]
  4. HYDROCHLOROHIAZIDE (HYDROCHLOROTHIAZIDE)(HYDROCHLOROTHIAZIDE) [Concomitant]
  5. METOPROLOL (METOPROLOL) (METOPROLOL) [Concomitant]
  6. ASPIRIN (ASPIRIN) (ASPIRIN) [Concomitant]
  7. CLOPIDOGREL(CLOPIDOGREL) [Concomitant]

REACTIONS (1)
  - Drug reaction with eosinophilia and systemic symptoms [None]
